FAERS Safety Report 9938662 (Version 6)
Quarter: 2014Q4

REPORT INFORMATION
  Report Type: Spontaneous
  Country: US (occurrence: US)
  Receive Date: 20140303
  Receipt Date: 20141209
  Transmission Date: 20150529
  Serious: Yes (Hospitalization, Other)
  Sender: FDA-Public Use
  Company Number: US-BAYER-2014-032305

PATIENT
  Age: 29 Year
  Sex: Female
  Weight: 63.49 kg

DRUGS (3)
  1. NUVARING [Concomitant]
     Active Substance: ETHINYL ESTRADIOL\ETONOGESTREL
  2. MIRENA [Suspect]
     Active Substance: LEVONORGESTREL
     Indication: CONTRACEPTION
     Dosage: 20 MCG/24HR, CONT
     Route: 015
     Dates: start: 20090223, end: 20130625
  3. BACTRIM [Concomitant]
     Active Substance: SULFAMETHOXAZOLE\TRIMETHOPRIM

REACTIONS (12)
  - Uterine perforation [Recovered/Resolved]
  - Drug ineffective [None]
  - Injury [Recovered/Resolved]
  - Emotional distress [None]
  - Anxiety [None]
  - Pain [Recovered/Resolved]
  - Device issue [None]
  - Device dislocation [Recovered/Resolved]
  - Depression [None]
  - Pregnancy with contraceptive device [None]
  - Urinary incontinence [None]
  - Abortion spontaneous [None]

NARRATIVE: CASE EVENT DATE: 2011
